FAERS Safety Report 4731894-8 (Version None)
Quarter: 2005Q3

REPORT INFORMATION
  Report Type: 
  Country: None (occurrence: None)
  Receive Date: 20050802
  Receipt Date: 20050802
  Transmission Date: 20060218
  Serious: Yes (Life-Threatening, Hospitalization)
  Sender: FDA-Public Use
  Company Number: None

PATIENT
  Age: 73 Year
  Sex: Male
  Weight: 80.2867 kg

DRUGS (1)
  1. THALLIUM 20 [Suspect]
     Indication: ARTERIOGRAM CORONARY
     Dosage: ONE TIME INTRAVENOUS
     Route: 042
     Dates: start: 20050714, end: 20050714

REACTIONS (5)
  - ARRHYTHMIA [None]
  - CONTRAST MEDIA REACTION [None]
  - HYPERKALAEMIA [None]
  - NEPHROPATHY [None]
  - RENAL FAILURE ACUTE [None]
